FAERS Safety Report 8844687 (Version 1)
Quarter: 2012Q4

REPORT INFORMATION
  Report Type: 
  Country: CO (occurrence: CO)
  Receive Date: 20121017
  Receipt Date: 20121017
  Transmission Date: 20130627
  Serious: Yes (Death)
  Sender: FDA-Public Use
  Company Number: CO-UCBSA-068467

PATIENT
  Age: 76 Year
  Sex: Female

DRUGS (4)
  1. CIMZIA [Suspect]
     Indication: RHEUMATOID ARTHRITIS
     Dosage: SINGLE DOSE
     Route: 058
     Dates: start: 20120724, end: 20120724
  2. CHLOROQUINE [Concomitant]
     Dosage: 150 MG/DAY
  3. METROTEXATE [Concomitant]
     Dosage: 10 MG/WEEK
  4. PREDNISOLONE [Concomitant]
     Dosage: 5 MG/DAY

REACTIONS (2)
  - Cardiac disorder [Fatal]
  - Post procedural complication [Fatal]
